FAERS Safety Report 14023810 (Version 1)
Quarter: 2017Q3

REPORT INFORMATION
  Report Type: Spontaneous
  Country: US (occurrence: US)
  Receive Date: 20170929
  Receipt Date: 20170929
  Transmission Date: 20171128
  Serious: No
  Sender: FDA-Public Use
  Company Number: US-JUBILANT CADISTA PHARMACEUTICALS-2017JUB00029

PATIENT
  Age: 74 Year
  Sex: Female
  Weight: 72.56 kg

DRUGS (10)
  1. SIMVASTATIN. [Concomitant]
     Active Substance: SIMVASTATIN
     Dosage: 20 MG, 1X/DAY
  2. METFORMIN [Concomitant]
     Active Substance: METFORMIN HYDROCHLORIDE
     Dosage: 500 MG, 2X/DAY
  3. XYZAL [Concomitant]
     Active Substance: LEVOCETIRIZINE DIHYDROCHLORIDE
     Dosage: UNK, 1X/DAY AT BEDTIME
  4. FOSINIPRIL [Concomitant]
     Dosage: 10 MG, 2X/DAY
  5. HYDROCODONE / ACETAMINOPHEN [Concomitant]
     Active Substance: ACETAMINOPHEN\HYDROCODONE
     Dosage: UNK, AS NEEDED
  6. METOPROLOL TARTRATE. [Concomitant]
     Active Substance: METOPROLOL TARTRATE
     Dosage: 25 MG, 2X/DAY
  7. ALLOPURINOL. [Concomitant]
     Active Substance: ALLOPURINOL
     Dosage: UNK, 2X/DAY
  8. PREDNISONE. [Suspect]
     Active Substance: PREDNISONE
     Indication: EPICONDYLITIS
     Dosage: AS DIRECTED: 3 TABLETS FOR 3 DAYS, THEN 2 TABLETS FOR 3 DAYS, THEN 1 TABLET FOR 3 DAYS
     Route: 048
     Dates: start: 20161214, end: 20161222
  9. DYAZIDE [Concomitant]
     Active Substance: HYDROCHLOROTHIAZIDE\TRIAMTERENE
  10. SYNTHROID [Concomitant]
     Active Substance: LEVOTHYROXINE SODIUM
     Dosage: 75 ?G, 1X/DAY

REACTIONS (2)
  - Dysgeusia [Not Recovered/Not Resolved]
  - Dysphagia [Not Recovered/Not Resolved]

NARRATIVE: CASE EVENT DATE: 201612
